FAERS Safety Report 8165495-9 (Version None)
Quarter: 2012Q1

REPORT INFORMATION
  Report Type: 
  Country: None (occurrence: None)
  Receive Date: 20120223
  Receipt Date: 20120223
  Transmission Date: 20120608
  Serious: No
  Sender: FDA-Public Use
  Company Number: None

PATIENT
  Sex: Male
  Weight: 81.6475 kg

DRUGS (2)
  1. DILTIAZEM [Suspect]
  2. LOSARTAN POTASSIUM [Suspect]
     Indication: HYPERTENSION
     Dosage: 50MG QD ORAL
     Route: 048
     Dates: start: 20111106, end: 20111205

REACTIONS (7)
  - FATIGUE [None]
  - RASH [None]
  - SKIN REACTION [None]
  - SOMNOLENCE [None]
  - INSOMNIA [None]
  - URTICARIA [None]
  - PRURITUS [None]
